FAERS Safety Report 7961658-3 (Version None)
Quarter: 2011Q4

REPORT INFORMATION
  Report Type: 
  Country: None (occurrence: None)
  Receive Date: 20111207
  Receipt Date: 20111201
  Transmission Date: 20120403
  Serious: Yes (Hospitalization)
  Sender: FDA-Public Use
  Company Number: US-GILEAD-2011-0047233

PATIENT
  Sex: Female

DRUGS (24)
  1. PAROXETINE HCL [Concomitant]
  2. FUROSEMIDE [Concomitant]
  3. ENABLEX                            /01760401/ [Concomitant]
  4. XOPENEX [Concomitant]
  5. NAC                                /00082801/ [Concomitant]
  6. CRESTOR [Concomitant]
  7. KETOCONAZOLE [Concomitant]
  8. BYSTOLIC [Concomitant]
  9. WARFARIN SODIUM [Concomitant]
  10. NYSTATIN W/TRIAMCINOLONE           /01760101/ [Concomitant]
  11. JANUMET [Concomitant]
  12. TYLENOL (CAPLET) [Concomitant]
  13. TRICOR [Concomitant]
  14. CELEBREX [Concomitant]
  15. SPIRONOLACTONE [Concomitant]
  16. CALCIUM [Concomitant]
  17. PREMARIN [Concomitant]
  18. ASPIRIN [Concomitant]
  19. OXYGEN [Concomitant]
  20. LETAIRIS [Suspect]
     Indication: PULMONARY HYPERTENSION
     Dosage: 5 MG, UNK
     Route: 048
     Dates: start: 20110907, end: 20111123
  21. FISH OIL [Concomitant]
  22. RANITIDINE [Concomitant]
  23. MYCOLOG-II [Concomitant]
  24. LOSARTAN POTASSIUM [Concomitant]

REACTIONS (5)
  - ASTHENIA [None]
  - MALAISE [None]
  - OEDEMA [None]
  - ANGIOEDEMA [None]
  - DYSPNOEA [None]
